FAERS Safety Report 16965915 (Version 9)
Quarter: 2021Q1

REPORT INFORMATION
  Report Type: Spontaneous
  Country: US (occurrence: US)
  Receive Date: 20191028
  Receipt Date: 20210204
  Transmission Date: 20210419
  Serious: Yes (Disabling, Other)
  Sender: FDA-Public Use
  Company Number: US-PFIZER INC-2019458584

PATIENT
  Age: 75 Year
  Sex: Female
  Weight: 70.76 kg

DRUGS (3)
  1. METHOTREXATE. [Concomitant]
     Active Substance: METHOTREXATE
     Indication: ARTHRITIS
     Dosage: 8 MG, WEEKLY
  2. XELJANZ XR [Suspect]
     Active Substance: TOFACITINIB CITRATE
     Indication: RHEUMATOID ARTHRITIS
  3. XELJANZ XR [Suspect]
     Active Substance: TOFACITINIB CITRATE
     Indication: ARTHRITIS
     Dosage: 11 MG, 1X/DAY
     Route: 048

REACTIONS (9)
  - Mobility decreased [Unknown]
  - Pain [Unknown]
  - Malaise [Unknown]
  - Spinal fracture [Unknown]
  - Off label use [Unknown]
  - Disturbance in attention [Unknown]
  - Fall [Unknown]
  - Condition aggravated [Unknown]
  - Hypoacusis [Unknown]

NARRATIVE: CASE EVENT DATE: 202011
